FAERS Safety Report 8611938 (Version 5)
Quarter: 2012Q4

REPORT INFORMATION
  Report Type: 
  Country: US (occurrence: US)
  Receive Date: 20120613
  Receipt Date: 20120905
  Transmission Date: 20130627
  Serious: Yes (Other)
  Sender: FDA-Public Use
  Company Number: US-JNJFOC-20120513076

PATIENT
  Age: 34 Year
  Sex: Female
  Weight: 48.54 kg

DRUGS (13)
  1. ELMIRON [Suspect]
     Indication: CYSTITIS INTERSTITIAL
     Route: 048
     Dates: start: 20120513, end: 20120514
  2. LEVEMIR [Concomitant]
     Indication: TYPE 2 DIABETES MELLITUS
     Route: 058
     Dates: start: 201109
  3. METFORMIN HYDROCHLORIDE [Concomitant]
     Indication: DIABETES MELLITUS
     Route: 065
  4. METFORMIN HYDROCHLORIDE [Concomitant]
     Indication: DIABETES MELLITUS
     Route: 065
     Dates: start: 20100307
  5. METFORMIN HYDROCHLORIDE [Concomitant]
     Indication: DIABETES MELLITUS
     Route: 065
     Dates: start: 20100330
  6. MECLIZINE [Concomitant]
     Indication: DIABETES MELLITUS
     Dosage: as necessary
     Route: 065
  7. ONGLYZA [Concomitant]
     Indication: DIABETES MELLITUS
     Route: 065
     Dates: start: 20100330
  8. ONGLYZA [Concomitant]
     Indication: DIABETES MELLITUS
     Route: 065
  9. NOVOLOG FLEXPEN [Concomitant]
     Indication: DIABETES MELLITUS
     Dosage: 100 unit/mL, before meals
     Route: 058
     Dates: start: 20120123
  10. UNKNOWN MEDICATION [Concomitant]
     Indication: DIABETES MELLITUS
     Route: 065
  11. LEVEMIR [Concomitant]
     Indication: DIABETES MELLITUS
     Route: 065
  12. CINNAMON [Concomitant]
     Route: 065
  13. PRAVACHOL [Concomitant]
     Route: 065

REACTIONS (6)
  - Depression [Recovered/Resolved]
  - Mental disorder [Recovered/Resolved]
  - Pelvic pain [Unknown]
  - Blood pressure increased [Not Recovered/Not Resolved]
  - Irritability [Recovered/Resolved]
  - Heart rate increased [Recovered/Resolved]
